FAERS Safety Report 26209272 (Version 1)
Quarter: 2025Q4

REPORT INFORMATION
  Report Type: Spontaneous
  Country: RU (occurrence: RU)
  Receive Date: 20251229
  Receipt Date: 20251229
  Transmission Date: 20260117
  Serious: Yes (Hospitalization, Other)
  Sender: GLAXOSMITHKLINE
  Company Number: RU-GSK-RU2025EME165724

PATIENT
  Age: 6 Year
  Sex: Male
  Weight: 14 kg

DRUGS (3)
  1. LAMICTAL [Suspect]
     Active Substance: LAMOTRIGINE
     Indication: Partial seizures
     Dosage: 0.5 DF, BID
  2. VIGABATRIN [Concomitant]
     Active Substance: VIGABATRIN
     Indication: Product used for unknown indication
  3. VALPROIC ACID [Concomitant]
     Active Substance: VALPROIC ACID
     Indication: Product used for unknown indication

REACTIONS (6)
  - Hypersensitivity vasculitis [Not Recovered/Not Resolved]
  - Otitis media [Unknown]
  - Tonsillitis [Unknown]
  - Lymphadenitis [Unknown]
  - Leukocytosis [Unknown]
  - Respiratory tract infection viral [Unknown]

NARRATIVE: CASE EVENT DATE: 20241216
